FAERS Safety Report 10479796 (Version 2)
Quarter: 2014Q3

REPORT INFORMATION
  Report Type: Spontaneous
  Country: IN (occurrence: IN)
  Receive Date: 20140928
  Receipt Date: 20140928
  Transmission Date: 20150326
  Serious: Yes (Other)
  Sender: FDA-Public Use
  Company Number: IN-009507513-1406IND009200

PATIENT
  Age: 56 Year
  Sex: Male
  Weight: 76 kg

DRUGS (2)
  1. ISTAMET [Suspect]
     Active Substance: METFORMIN HYDROCHLORIDE\SITAGLIPTIN PHOSPHATE
     Indication: DIABETES MELLITUS
     Dosage: 1 TABLET AS DAILY DOSE
     Route: 048
     Dates: start: 201306
  2. PANTOPRAZOLE [Concomitant]
     Active Substance: PANTOPRAZOLE SODIUM
     Indication: GASTRITIS
     Dosage: DAILY 40 MG
     Route: 048

REACTIONS (3)
  - Chest pain [Recovered/Resolved]
  - Abdominal pain upper [Recovered/Resolved]
  - Hyperhidrosis [Recovered/Resolved]
